FAERS Safety Report 6309940-X (Version None)
Quarter: 2009Q3

REPORT INFORMATION
  Report Type: 
  Country: None (occurrence: None)
  Receive Date: 20090814
  Receipt Date: 20090805
  Transmission Date: 20100115
  Serious: Yes (Hospitalization)
  Sender: FDA-Public Use
  Company Number: B0587372A

PATIENT
  Age: 58 Year
  Sex: Female

DRUGS (2)
  1. ZOPHREN IV [Suspect]
     Dosage: 2MG SINGLE DOSE
     Route: 042
     Dates: start: 20090617, end: 20090617
  2. ACETAMINOPHEN [Suspect]
     Indication: MIGRAINE
     Route: 042
     Dates: start: 20090617, end: 20090617

REACTIONS (4)
  - ANXIETY [None]
  - ERYTHEMA [None]
  - PARAESTHESIA [None]
  - RASH MACULAR [None]
